FAERS Safety Report 4380843-3 (Version None)
Quarter: 2004Q2

REPORT INFORMATION
  Report Type: 
  Country: None (occurrence: None)
  Receive Date: 20040616
  Receipt Date: 20040608
  Transmission Date: 20050107
  Serious: Yes (Hospitalization)
  Sender: FDA-Public Use
  Company Number: 2004-06-0467

PATIENT
  Age: 68 Year
  Sex: Female
  Weight: 69 kg

DRUGS (6)
  1. PEG-INTERFERON ALFA-2B [Suspect]
     Indication: CRYOGLOBULINAEMIA
     Dosage: 100 MCG QWK SUBCUTANEOUS
     Route: 058
     Dates: start: 20031002
  2. RIBAVIRIN [Suspect]
     Indication: CRYOGLOBULINAEMIA
     Dosage: ORAL
     Route: 048
     Dates: start: 20031002
  3. FOSINOPRIL SODIUM [Concomitant]
  4. CELEXA [Concomitant]
  5. PLAQUENIL [Concomitant]
  6. ACARBOSE [Concomitant]

REACTIONS (2)
  - FEBRILE INFECTION [None]
  - RESPIRATORY TRACT INFECTION [None]
